FAERS Safety Report 5182878-X (Version None)
Quarter: 2006Q4

REPORT INFORMATION
  Report Type: 
  Country: None (occurrence: None)
  Receive Date: 20061220
  Receipt Date: 20051128
  Transmission Date: 20070319
  Serious: No
  Sender: FDA-Public Use
  Company Number: US-GLAXOSMITHKLINE-A0583648A

PATIENT
  Sex: Female

DRUGS (2)
  1. MEMBERS MARK NTS ORIGINAL, 14MG [Suspect]
     Dates: start: 20051128, end: 20051128
  2. MEMBERS MARK NTS ORIGINAL, 21MG [Suspect]

REACTIONS (5)
  - APPLICATION SITE IRRITATION [None]
  - APPLICATION SITE PRURITUS [None]
  - DIZZINESS [None]
  - NAUSEA [None]
  - NICOTINE DEPENDENCE [None]
